FAERS Safety Report 5815718-3 (Version None)
Quarter: 2008Q3

REPORT INFORMATION
  Report Type: 
  Country: None (occurrence: None)
  Receive Date: 20080721
  Receipt Date: 20080710
  Transmission Date: 20090109
  Serious: Yes (Hospitalization)
  Sender: FDA-Public Use
  Company Number: CH-ELI_LILLY_AND_COMPANY-CH200806005455

PATIENT
  Age: 58 Year
  Sex: Male

DRUGS (5)
  1. PEMETREXED [Suspect]
     Indication: PLEURAL MESOTHELIOMA MALIGNANT
     Dosage: 900 MG, ON DAY 1 EVERY 21 DAYS
     Route: 042
     Dates: start: 20080425, end: 20080606
  2. CISPLATIN [Suspect]
     Indication: PLEURAL MESOTHELIOMA MALIGNANT
     Dosage: 140 MG, ON DAY 1 OF 21 DAY CYCLE
     Route: 042
     Dates: start: 20080425, end: 20080606
  3. DIOVAN [Concomitant]
     Indication: HYPERTENSION
     Dosage: 12.5 MG/80MG, DAILY (1/D)
     Route: 048
     Dates: start: 20080620
  4. ASPIRIN [Concomitant]
     Indication: HYPERTENSION
     Dosage: 100 MG, DAILY (1/D)
     Route: 048
     Dates: start: 20080606
  5. AMLODIPINE [Concomitant]
     Indication: HYPERTENSION
     Route: 048

REACTIONS (2)
  - CEREBRAL INFARCTION [None]
  - MYOCARDIAL INFARCTION [None]
